FAERS Safety Report 8023806-9 (Version None)
Quarter: 2012Q1

REPORT INFORMATION
  Report Type: 
  Country: None (occurrence: None)
  Receive Date: 20120105
  Receipt Date: 20111226
  Transmission Date: 20120608
  Serious: Yes (Other)
  Sender: FDA-Public Use
  Company Number: FR-JNJFOC-20120100863

PATIENT
  Age: 42 Year
  Sex: Male

DRUGS (2)
  1. ACETAMINOPHEN W/ PROPOXYPHENE HCL [Concomitant]
     Indication: PRODUCT USED FOR UNKNOWN INDICATION
     Route: 065
  2. TRAMADOL HYDROCHLORIDE AND ACETAMINOPHEN [Suspect]
     Indication: PAIN
     Route: 048
     Dates: start: 20110809, end: 20110905

REACTIONS (3)
  - NIGHTMARE [None]
  - ABNORMAL BEHAVIOUR [None]
  - AMNESTIC DISORDER [None]
